FAERS Safety Report 22358443 (Version 1)
Quarter: 2023Q2

REPORT INFORMATION
  Report Type: Spontaneous
  Country: JP (occurrence: JP)
  Receive Date: 20230524
  Receipt Date: 20230524
  Transmission Date: 20230721
  Serious: Yes (Other)
  Sender: FDA-Public Use
  Company Number: JP-UCBJ-CD202304966UCBPHAPROD

PATIENT
  Age: 60 Year
  Sex: Male

DRUGS (1)
  1. LEVETIRACETAM [Suspect]
     Active Substance: LEVETIRACETAM
     Indication: Product used for unknown indication
     Dosage: UNK
     Route: 048
     Dates: start: 20230516, end: 20230516

REACTIONS (5)
  - Renal impairment [Unknown]
  - Electrocardiogram QT prolonged [Unknown]
  - Graves^ disease [Unknown]
  - Condition aggravated [Unknown]
  - Hepatic function abnormal [Unknown]
